FAERS Safety Report 11224543 (Version 1)
Quarter: 2015Q2

REPORT INFORMATION
  Report Type: Spontaneous
  Country: US (occurrence: US)
  Receive Date: 20150629
  Receipt Date: 20150629
  Transmission Date: 20150821
  Serious: Yes (Other)
  Sender: FDA-Public Use
  Company Number: US-AUROBINDO-AUR-APL-2015-05553

PATIENT
  Sex: Female
  Weight: 88 kg

DRUGS (3)
  1. EFFEXOR XR [Suspect]
     Active Substance: VENLAFAXINE HYDROCHLORIDE
     Indication: BIPOLAR DISORDER
     Dosage: 75 MG, ONCE A DAY
     Route: 048
     Dates: start: 1998
  2. METFORMIN [Suspect]
     Active Substance: METFORMIN HYDROCHLORIDE
     Indication: TYPE 2 DIABETES MELLITUS
     Dosage: UNK
     Route: 065
     Dates: start: 2000, end: 2011
  3. EFFEXOR [Suspect]
     Active Substance: VENLAFAXINE HYDROCHLORIDE
     Indication: BIPOLAR DISORDER
     Dosage: 37.5 MG, ONCE A DAY
     Route: 048
     Dates: start: 1998, end: 1998

REACTIONS (16)
  - Blindness [Not Recovered/Not Resolved]
  - Crying [Unknown]
  - Anger [Unknown]
  - Blood glucose increased [Not Recovered/Not Resolved]
  - Ocular discomfort [Not Recovered/Not Resolved]
  - Drug ineffective [Unknown]
  - Type 2 diabetes mellitus [Not Recovered/Not Resolved]
  - Photophobia [Unknown]
  - Drug dose omission [Unknown]
  - Head discomfort [Recovered/Resolved]
  - Photopsia [Unknown]
  - Lacrimation increased [Unknown]
  - Vitreous floaters [Unknown]
  - Somnolence [Unknown]
  - Transient ischaemic attack [Unknown]
  - Libido decreased [Unknown]

NARRATIVE: CASE EVENT DATE: 2000
